FAERS Safety Report 19921714 (Version 8)
Quarter: 2023Q4

REPORT INFORMATION
  Report Type: Other
  Country: CA (occurrence: CA)
  Receive Date: 20211006
  Receipt Date: 20231220
  Transmission Date: 20240110
  Serious: Yes (Other)
  Sender: FDA-Public Use
  Company Number: CA-TOLMAR, INC.-21CA028457

PATIENT
  Age: 83 Year
  Sex: Male

DRUGS (19)
  1. ELIGARD [Suspect]
     Active Substance: LEUPROLIDE ACETATE
     Indication: Prostate cancer
     Dosage: 30 MILLIGRAM, Q 4 MONTH
     Route: 058
     Dates: start: 20160226
  2. ELIGARD [Suspect]
     Active Substance: LEUPROLIDE ACETATE
     Dosage: 30 MILLIGRAM, Q 4 MONTH
     Route: 058
     Dates: start: 20210628
  3. ELIGARD [Suspect]
     Active Substance: LEUPROLIDE ACETATE
     Dosage: 30 MILLIGRAM, Q 4 MONTH
     Route: 058
     Dates: start: 20211018
  4. ELIGARD [Suspect]
     Active Substance: LEUPROLIDE ACETATE
     Dosage: 30 MILLIGRAM, Q 4 MONTH
     Route: 058
     Dates: start: 20220602
  5. ELIGARD [Suspect]
     Active Substance: LEUPROLIDE ACETATE
     Dosage: 30 MILLIGRAM, Q 4 MONTH
     Route: 058
     Dates: start: 20220922
  6. ELIGARD [Suspect]
     Active Substance: LEUPROLIDE ACETATE
     Dosage: 30 MILLIGRAM, Q 4 MONTH
     Route: 058
     Dates: start: 20230504
  7. ELIGARD [Suspect]
     Active Substance: LEUPROLIDE ACETATE
     Dosage: 30 MILLIGRAM, Q 4 MONTH
     Route: 058
     Dates: start: 20230824
  8. ELIGARD [Suspect]
     Active Substance: LEUPROLIDE ACETATE
     Dosage: 30 MILLIGRAM, Q 4 MONTH
     Route: 058
     Dates: start: 20231213
  9. XTANDI [Suspect]
     Active Substance: ENZALUTAMIDE
     Indication: Metastases to spine
     Dosage: UNK
     Dates: start: 20210525, end: 202308
  10. XGEVA [Concomitant]
     Active Substance: DENOSUMAB
     Indication: Metastases to spine
     Dosage: UNK
     Dates: start: 20210525
  11. TAXOTERE [Concomitant]
     Active Substance: DOCETAXEL
     Indication: Prostatic specific antigen increased
     Dosage: UNK, Q 3 WEEK
     Dates: start: 202308
  12. TAXOTERE [Concomitant]
     Active Substance: DOCETAXEL
     Indication: Metastases to spine
     Dosage: UNK, Q 3 WEEK
  13. TAXOTERE [Concomitant]
     Active Substance: DOCETAXEL
     Dosage: UNK, Q 3 WEEK
  14. TAXOTERE [Concomitant]
     Active Substance: DOCETAXEL
     Dosage: UNK, Q 3 WEEK
  15. TAXOTERE [Concomitant]
     Active Substance: DOCETAXEL
     Dosage: UNK, Q 3 WEEK
  16. TAXOTERE [Concomitant]
     Active Substance: DOCETAXEL
     Dosage: UNK, Q 3 WEEK
  17. TAXOTERE [Concomitant]
     Active Substance: DOCETAXEL
     Dosage: UNK, Q 3 WEEK
  18. TAXOTERE [Concomitant]
     Active Substance: DOCETAXEL
     Dosage: UNK, Q 3 WEEK
  19. PREGABALIN [Concomitant]
     Active Substance: PREGABALIN
     Indication: Product used for unknown indication

REACTIONS (8)
  - Lung neoplasm [Unknown]
  - Lymphadenopathy [Unknown]
  - Prostatic specific antigen abnormal [Not Recovered/Not Resolved]
  - Metastases to spine [Not Recovered/Not Resolved]
  - Injection site mass [Recovered/Resolved]
  - Injection site pain [Recovered/Resolved]
  - Fatigue [Recovering/Resolving]
  - Back pain [Not Recovered/Not Resolved]

NARRATIVE: CASE EVENT DATE: 20210301
